FAERS Safety Report 13740336 (Version 1)
Quarter: 2017Q3

REPORT INFORMATION
  Report Type: Spontaneous
  Country: US (occurrence: US)
  Receive Date: 20170710
  Receipt Date: 20170710
  Transmission Date: 20171127
  Serious: Yes (Life-Threatening, Hospitalization, Disabling)
  Sender: FDA-Public Use
  Company Number: None

PATIENT
  Age: 47 Year
  Sex: Male
  Weight: 108.9 kg

DRUGS (4)
  1. VISTARIL [Concomitant]
     Active Substance: HYDROXYZINE PAMOATE
  2. LORAZEPAM. [Suspect]
     Active Substance: LORAZEPAM
     Indication: GASTROINTESTINAL PAIN
     Dosage: ?          OTHER STRENGTH:MG;QUANTITY:1 TABLET(S);?
     Route: 048
  3. DIAZEPAM. [Suspect]
     Active Substance: DIAZEPAM
     Indication: DRUG THERAPY
     Dosage: ?          OTHER STRENGTH:MG;QUANTITY:1 TABLET(S);?
     Route: 048
  4. SEROQUEL [Concomitant]
     Active Substance: QUETIAPINE FUMARATE

REACTIONS (19)
  - Withdrawal syndrome [None]
  - Depersonalisation/derealisation disorder [None]
  - Social avoidant behaviour [None]
  - Burn of internal organs [None]
  - Chills [None]
  - Exercise tolerance increased [None]
  - Palpitations [None]
  - Loss of personal independence in daily activities [None]
  - Vision blurred [None]
  - Fear [None]
  - Muscle twitching [None]
  - Nervous system disorder [None]
  - Dizziness [None]
  - Diarrhoea [None]
  - Insomnia [None]
  - Gastrointestinal pain [None]
  - Anxiety [None]
  - Food intolerance [None]
  - Suicidal ideation [None]

NARRATIVE: CASE EVENT DATE: 20141006
